FAERS Safety Report 10208157 (Version 1)
Quarter: 2014Q2

REPORT INFORMATION
  Report Type: Spontaneous
  Country: US (occurrence: None)
  Receive Date: 20140528
  Receipt Date: 20140528
  Transmission Date: 20141212
  Serious: Yes (Other)
  Sender: FDA-Public Use
  Company Number: None

PATIENT
  Age: 54 Year
  Sex: Male
  Weight: 141.98 kg

DRUGS (4)
  1. VICTOZA [Suspect]
     Indication: DIABETES MELLITUS INADEQUATE CONTROL
     Dates: start: 20140522, end: 20140523
  2. METFORMIN [Concomitant]
  3. ACIPHEX [Concomitant]
  4. LISINOPRIL [Concomitant]

REACTIONS (6)
  - Chills [None]
  - Nausea [None]
  - Vomiting [None]
  - Decreased appetite [None]
  - Tremor [None]
  - Blood glucose increased [None]
